FAERS Safety Report 5896019-4 (Version None)
Quarter: 2008Q3

REPORT INFORMATION
  Report Type: 
  Country: None (occurrence: None)
  Receive Date: 20080924
  Receipt Date: 20080915
  Transmission Date: 20090109
  Serious: Yes (Other)
  Sender: FDA-Public Use
  Company Number: US-SANOFI-SYNTHELABO-A03200803622

PATIENT
  Age: 32 Year
  Sex: Female

DRUGS (3)
  1. AMBIEN [Suspect]
     Indication: DRUG USE FOR UNKNOWN INDICATION
     Route: 048
     Dates: start: 20080530
  2. TRAMADOL HCL [Concomitant]
     Dosage: UNK
     Route: 065
  3. HYDROCODONE BITARTRATE [Concomitant]
     Dosage: UNK
     Route: 065

REACTIONS (5)
  - AMNESIA [None]
  - DRUG DISPENSING ERROR [None]
  - IMPAIRED DRIVING ABILITY [None]
  - ROAD TRAFFIC ACCIDENT [None]
  - SOMNOLENCE [None]
